FAERS Safety Report 6911116-X (Version None)
Quarter: 2010Q3

REPORT INFORMATION
  Report Type: 
  Country: None (occurrence: None)
  Receive Date: 20100806
  Receipt Date: 20100726
  Transmission Date: 20110219
  Serious: Yes (Hospitalization)
  Sender: FDA-Public Use
  Company Number: DE-AMGEN-US331359

PATIENT
  Sex: Male
  Weight: 51 kg

DRUGS (5)
  1. ENBREL [Suspect]
     Indication: JUVENILE ARTHRITIS
     Route: 058
     Dates: start: 20070806, end: 20080307
  2. ENBREL [Suspect]
     Route: 058
     Dates: start: 20080101, end: 20080902
  3. NAPROXEN [Suspect]
     Indication: JUVENILE ARTHRITIS
     Route: 048
     Dates: start: 19920601
  4. LANTAREL [Suspect]
     Indication: JUVENILE ARTHRITIS
     Route: 058
     Dates: start: 19931101, end: 20080201
  5. FOLIC ACID [Concomitant]
     Route: 048

REACTIONS (4)
  - CONDITION AGGRAVATED [None]
  - CROHN'S DISEASE [None]
  - JUVENILE ARTHRITIS [None]
  - PANCREATITIS [None]
